FAERS Safety Report 6332784-X (Version None)
Quarter: 2009Q3

REPORT INFORMATION
  Report Type: 
  Country: None (occurrence: None)
  Receive Date: 20090828
  Receipt Date: 20090820
  Transmission Date: 20100115
  Serious: Yes (Hospitalization)
  Sender: FDA-Public Use
  Company Number: B0589441A

PATIENT
  Sex: Female

DRUGS (5)
  1. DEROXAT [Suspect]
     Indication: DRUG USE FOR UNKNOWN INDICATION
     Dosage: 20MG PER DAY
     Route: 048
     Dates: end: 20090721
  2. ARICEPT [Suspect]
     Dosage: 10MG PER DAY
     Route: 048
     Dates: start: 20060101, end: 20090721
  3. ALDACTONE [Suspect]
     Dosage: 25MG PER DAY
     Route: 048
     Dates: end: 20090721
  4. RISPERDAL [Suspect]
     Dosage: .5MG PER DAY
     Route: 048
     Dates: end: 20090721
  5. TEMESTA [Suspect]
     Dosage: 1MG PER DAY
     Route: 048

REACTIONS (6)
  - AMNESIA [None]
  - CONFUSIONAL STATE [None]
  - FALL [None]
  - LOSS OF CONSCIOUSNESS [None]
  - MULTIPLE FRACTURES [None]
  - SYNCOPE [None]
